FAERS Safety Report 5401460-X (Version None)
Quarter: 2007Q3

REPORT INFORMATION
  Report Type: 
  Country: None (occurrence: None)
  Receive Date: 20070731
  Receipt Date: 20070716
  Transmission Date: 20080115
  Serious: Yes (Hospitalization, Other)
  Sender: FDA-Public Use
  Company Number: BE-ASTRAZENECA-2007AC01304

PATIENT
  Sex: Female

DRUGS (1)
  1. ZOLADEX [Suspect]
     Indication: ENDOMETRIOSIS
     Route: 058
     Dates: start: 20061107

REACTIONS (4)
  - AMENORRHOEA [None]
  - BLOOD FOLLICLE STIMULATING HORMONE DECREASED [None]
  - BLOOD LUTEINISING HORMONE DECREASED [None]
  - OVARIAN DISORDER [None]
